FAERS Safety Report 6540060-5 (Version None)
Quarter: 2010Q1

REPORT INFORMATION
  Report Type: 
  Country: None (occurrence: None)
  Receive Date: 20100115
  Receipt Date: 20091102
  Transmission Date: 20100710
  Serious: Yes (Other)
  Sender: FDA-Public Use
  Company Number: GB-SANOFI-AVENTIS-A01200911101

PATIENT
  Age: 57 Year
  Sex: Female

DRUGS (2)
  1. OXALIPLATIN [Suspect]
     Indication: COLON CANCER
     Route: 042
     Dates: start: 20080101, end: 20080101
  2. XELODA [Suspect]
     Indication: COLON CANCER
     Route: 065
     Dates: start: 20080101, end: 20080101

REACTIONS (7)
  - BLISTER [None]
  - DIARRHOEA [None]
  - FATIGUE [None]
  - INSOMNIA [None]
  - NEUROPATHY PERIPHERAL [None]
  - PAIN IN EXTREMITY [None]
  - WEIGHT DECREASED [None]
